FAERS Safety Report 14372287 (Version 1)
Quarter: 2018Q1

REPORT INFORMATION
  Report Type: Spontaneous
  Country: US (occurrence: US)
  Receive Date: 20180110
  Receipt Date: 20180110
  Transmission Date: 20180509
  Serious: Yes (Other)
  Sender: FDA-Public Use
  Company Number: US-THE MENTHOLATUM COMPANY-2039829

PATIENT
  Age: 64 Year
  Sex: Female
  Weight: 73.64 kg

DRUGS (1)
  1. ROHTO DRY-AID [Suspect]
     Active Substance: POVIDONE\PROPYLENE GLYCOL
     Route: 047
     Dates: start: 20171220, end: 20171220

REACTIONS (3)
  - Eye swelling [Unknown]
  - Infection [Unknown]
  - Ocular hyperaemia [Unknown]
